FAERS Safety Report 24430674 (Version 3)
Quarter: 2025Q1

REPORT INFORMATION
  Report Type: Spontaneous
  Country: FR (occurrence: FR)
  Receive Date: 20241013
  Receipt Date: 20250310
  Transmission Date: 20250408
  Serious: Yes (Hospitalization, Other)
  Sender: JOHNSON AND JOHNSON
  Company Number: FR-AFSSAPS-PV2024000924

PATIENT
  Age: 58 Year
  Sex: Female
  Weight: 51 kg

DRUGS (24)
  1. TRACLEER [Suspect]
     Active Substance: BOSENTAN
     Indication: Interstitial lung disease
     Route: 048
     Dates: start: 2018, end: 20240911
  2. TRACLEER [Suspect]
     Active Substance: BOSENTAN
     Route: 048
  3. BACTRIM [Suspect]
     Active Substance: SULFAMETHOXAZOLE\TRIMETHOPRIM
     Indication: Antibiotic prophylaxis
     Dosage: 400/80 MG
     Route: 048
     Dates: start: 20240809, end: 20240911
  4. AZITHROMYCIN [Suspect]
     Active Substance: AZITHROMYCIN
     Indication: Antibiotic prophylaxis
     Route: 048
     Dates: start: 202310, end: 20240911
  5. AZITHROMYCIN [Suspect]
     Active Substance: AZITHROMYCIN
     Dosage: 2 TABS IN  THE  MORNING
     Route: 048
  6. OFEV [Suspect]
     Active Substance: NINTEDANIB
     Indication: Interstitial lung disease
     Route: 048
     Dates: start: 202203, end: 20240911
  7. OFEV [Suspect]
     Active Substance: NINTEDANIB
     Dosage: 150  MG:  1  TABLET  MORNING  AND  EVENING.
     Route: 048
  8. DOMPERIDONE [Concomitant]
     Active Substance: DOMPERIDONE
  9. LEVOTHYROXINE [Concomitant]
     Active Substance: LEVOTHYROXINE
  10. DILTIAZEM HYDROCHLORIDE [Concomitant]
     Active Substance: DILTIAZEM HYDROCHLORIDE
  11. AMIKACIN [Concomitant]
     Active Substance: AMIKACIN
     Route: 042
     Dates: start: 202404, end: 20240911
  12. REVATIO [Concomitant]
     Active Substance: SILDENAFIL CITRATE
     Indication: Interstitial lung disease
     Route: 048
     Dates: end: 20240911
  13. REVATIO [Concomitant]
     Active Substance: SILDENAFIL CITRATE
     Route: 048
  14. ETHAMBUTOL HYDROCHLORIDE [Concomitant]
     Active Substance: ETHAMBUTOL HYDROCHLORIDE
     Route: 048
     Dates: start: 202310, end: 20240911
  15. ETHAMBUTOL HYDROCHLORIDE [Concomitant]
     Active Substance: ETHAMBUTOL HYDROCHLORIDE
     Dosage: 2 TABLETS IN THE MORNING
  16. POTASSIUM CHLORIDE [Concomitant]
     Active Substance: POTASSIUM CHLORIDE
  17. FUROSEMIDE [Concomitant]
     Active Substance: FUROSEMIDE
  18. ESOMEPRAZOLE [Concomitant]
     Active Substance: ESOMEPRAZOLE
     Route: 048
     Dates: end: 20240911
  19. ESOMEPRAZOLE [Concomitant]
     Active Substance: ESOMEPRAZOLE
     Dosage: 1  TABLET  MORNING  AND  EVENING
     Route: 048
  20. RIFABUTIN [Concomitant]
     Active Substance: RIFABUTIN
     Route: 048
     Dates: start: 202310, end: 20240911
  21. RIFABUTIN [Concomitant]
     Active Substance: RIFABUTIN
     Dosage: 2 TABS IN THE MORNING
     Route: 048
  22. PREDNISONE [Concomitant]
     Active Substance: PREDNISONE
  23. SULFAMETHOXAZOLE [Concomitant]
     Active Substance: SULFAMETHOXAZOLE
  24. TRIMETHOPRIM [Concomitant]
     Active Substance: TRIMETHOPRIM

REACTIONS (7)
  - Hepatic cytolysis [Recovering/Resolving]
  - Jaundice [Recovering/Resolving]
  - Cholestasis [Recovering/Resolving]
  - Hepatitis cholestatic [Not Recovered/Not Resolved]
  - Hospitalisation [Unknown]
  - Atypical mycobacterial infection [Unknown]
  - Pruritus [Unknown]

NARRATIVE: CASE EVENT DATE: 20240827
